FAERS Safety Report 15722084 (Version 2)
Quarter: 2018Q4

REPORT INFORMATION
  Report Type: Spontaneous
  Country: JP (occurrence: JP)
  Receive Date: 20181214
  Receipt Date: 20181220
  Transmission Date: 20190205
  Serious: Yes (Hospitalization)
  Sender: FDA-Public Use
  Company Number: JP-JT-EVA201803888KERYXP-001

PATIENT
  Age: 58 Year
  Sex: Female
  Weight: 52 kg

DRUGS (20)
  1. INVESTIGATIONAL DRUG [Concomitant]
     Active Substance: INVESTIGATIONAL PRODUCT
     Dosage: 4 MG, QD
     Route: 048
     Dates: start: 20180409, end: 20180701
  2. INVESTIGATIONAL DRUG [Concomitant]
     Active Substance: INVESTIGATIONAL PRODUCT
     Dosage: 4 MG, QD
     Route: 048
     Dates: start: 20180924, end: 20181111
  3. FOLIAMIN [Concomitant]
     Active Substance: FOLIC ACID
     Indication: FOLATE DEFICIENCY
     Dosage: 2.5 MG, QD
     Route: 048
  4. METHYCOBAL [Concomitant]
     Active Substance: METHYLCOBALAMIN
     Indication: NEUROPATHY PERIPHERAL
     Dosage: 500 MICRO-G, TID
     Route: 048
  5. EDIROL [Concomitant]
     Active Substance: ELDECALCITOL
     Indication: OSTEOPOROSIS
     Dosage: 0.5 MICRO-G, UNK
     Route: 048
  6. FOSRENOL [Concomitant]
     Active Substance: LANTHANUM CARBONATE
     Indication: HYPERPHOSPHATAEMIA
     Dosage: 250 MG, QD
     Route: 048
     Dates: start: 20180518
  7. INVESTIGATIONAL DRUG [Concomitant]
     Active Substance: INVESTIGATIONAL PRODUCT
     Dosage: 2 MG, QD
     Route: 048
     Dates: start: 20180702, end: 20180923
  8. MYSER                              /01249201/ [Concomitant]
     Active Substance: DIFLUPREDNATE
     Indication: PRURITUS
     Dosage: UNK
     Route: 003
     Dates: start: 20180718
  9. RIONA [Suspect]
     Active Substance: FERRIC CITRATE ANHYDROUS
     Indication: HYPERPHOSPHATAEMIA
     Dosage: 250 MG, BID
     Route: 048
  10. EVOCALCET [Concomitant]
     Active Substance: EVOCALCET
     Indication: HYPERPARATHYROIDISM SECONDARY
     Dosage: 1 MG, QD
     Route: 048
     Dates: start: 20180625
  11. FOSRENOL [Concomitant]
     Active Substance: LANTHANUM CARBONATE
     Indication: HYPERPHOSPHATAEMIA
     Dosage: 500 MG, TID
     Route: 048
  12. PETROLATUM SALICYLATE [Concomitant]
     Indication: HYPERKERATOSIS
     Dosage: UNK
     Route: 003
     Dates: start: 20180105
  13. HIRUDOID [Concomitant]
     Active Substance: GLYCOSAMINOGLYCANS
     Indication: PRURITUS
     Dosage: UNK
     Route: 003
     Dates: start: 20180718
  14. INVESTIGATIONAL DRUG [Concomitant]
     Active Substance: INVESTIGATIONAL PRODUCT
     Dosage: 2 MG, QD
     Route: 048
     Dates: start: 20171218, end: 20180408
  15. LOXONIN [Concomitant]
     Active Substance: LOXOPROFEN SODIUM
     Indication: CARPAL TUNNEL SYNDROME
     Dosage: 200 MG, QD
     Route: 062
  16. HEPARIN SODIUM. [Concomitant]
     Active Substance: HEPARIN SODIUM
     Indication: THROMBOSIS PROPHYLAXIS
     Dosage: UNK
     Route: 010
     Dates: start: 20171110
  17. LINZESS [Concomitant]
     Active Substance: LINACLOTIDE
     Indication: CONSTIPATION
     Dosage: UNK UNK, QD
     Route: 048
     Dates: start: 20180514
  18. INVESTIGATIONAL DRUG [Concomitant]
     Active Substance: INVESTIGATIONAL PRODUCT
     Indication: NEPHROGENIC ANAEMIA
     Dosage: 4 MG, QD
     Route: 048
     Dates: start: 20171113, end: 20171217
  19. PURSENNID                          /00142207/ [Concomitant]
     Active Substance: SENNA LEAF
     Indication: CONSTIPATION
     Dosage: 24 MG, QD
     Route: 048
  20. SHAKUYAKUKANZOTO [Concomitant]
     Active Substance: HERBALS
     Indication: MUSCLE SPASMS
     Dosage: 2.5 G, QD
     Route: 048

REACTIONS (2)
  - Carpal tunnel syndrome [Recovering/Resolving]
  - Trigger finger [Recovering/Resolving]

NARRATIVE: CASE EVENT DATE: 20180709
